FAERS Safety Report 21485776 (Version 6)
Quarter: 2024Q4

REPORT INFORMATION
  Report Type: Report from Study
  Country: IN (occurrence: IN)
  Receive Date: 20221020
  Receipt Date: 20241030
  Transmission Date: 20250115
  Serious: Yes (Hospitalization, Disabling, Other)
  Sender: BIOGEN
  Company Number: IN-BIOGEN-2022BI01162354

PATIENT
  Age: 52 Year
  Sex: Female

DRUGS (6)
  1. AVONEX [Suspect]
     Active Substance: INTERFERON BETA-1A
     Indication: Multiple sclerosis
     Route: 050
     Dates: start: 20161122
  2. AVONEX [Suspect]
     Active Substance: INTERFERON BETA-1A
     Route: 050
     Dates: start: 20161121
  3. AVONEX [Suspect]
     Active Substance: INTERFERON BETA-1A
     Route: 050
     Dates: start: 20161112, end: 202410
  4. AVONEX [Suspect]
     Active Substance: INTERFERON BETA-1A
  5. VITAMIN C [Concomitant]
     Active Substance: ASCORBIC ACID
     Indication: Product used for unknown indication
     Route: 050
  6. VITAMIN D [Concomitant]
     Active Substance: VITAMIN D NOS
     Indication: Product used for unknown indication
     Route: 050

REACTIONS (7)
  - Multiple sclerosis relapse [Not Recovered/Not Resolved]
  - Swelling [Unknown]
  - Diplegia [Not Recovered/Not Resolved]
  - Blood glucose decreased [Unknown]
  - Pyrexia [Recovered/Resolved]
  - Pain in extremity [Not Recovered/Not Resolved]
  - Paraesthesia [Not Recovered/Not Resolved]

NARRATIVE: CASE EVENT DATE: 20220101
